FAERS Safety Report 6417142-1 (Version None)
Quarter: 2009Q4

REPORT INFORMATION
  Report Type: 
  Country: None (occurrence: None)
  Receive Date: 20091028
  Receipt Date: 20091023
  Transmission Date: 20100525
  Serious: No
  Sender: FDA-Public Use
  Company Number: US-ROXANE LABORATORIES, INC.-2009-RO-00836RO

PATIENT
  Sex: Female
  Weight: 64 kg

DRUGS (3)
  1. LITHIUM CARBONATE [Suspect]
     Indication: BIPOLAR DISORDER
     Dosage: 1200 MG
     Dates: start: 19880901
  2. LITHIUM CARBONATE [Suspect]
     Dosage: 300 MG
     Route: 048
     Dates: start: 20010101
  3. LITHIUM CARBONATE [Suspect]
     Dosage: 1200 MG
     Route: 048
     Dates: start: 20090415, end: 20090511

REACTIONS (8)
  - ABDOMINAL DISCOMFORT [None]
  - ANTIPSYCHOTIC DRUG LEVEL BELOW THERAPEUTIC [None]
  - ANXIETY [None]
  - DEPRESSION [None]
  - DYSGEUSIA [None]
  - FEELING ABNORMAL [None]
  - MALAISE [None]
  - PRODUCT QUALITY ISSUE [None]
